FAERS Safety Report 12254517 (Version 1)
Quarter: 2016Q2

REPORT INFORMATION
  Report Type: Spontaneous
  Country: CA (occurrence: CA)
  Receive Date: 20160411
  Receipt Date: 20160411
  Transmission Date: 20160815
  Serious: Yes (Hospitalization)
  Sender: FDA-Public Use
  Company Number: CA-MYLANLABS-2016M1014691

PATIENT

DRUGS (3)
  1. LIOTHYRONINE [Suspect]
     Active Substance: LIOTHYRONINE
     Indication: HYPOTHYROIDISM
     Dosage: 25 MICROG IN HYPROMELLOSE FOR ONCE DAILY DOSING (INTENDED DOSAGE)
     Route: 065
  2. AMLODIPINE [Concomitant]
     Active Substance: AMLODIPINE BESYLATE
     Dosage: 2.5MG DAILY
     Route: 065
  3. PANTOPRAZOLE [Concomitant]
     Active Substance: PANTOPRAZOLE SODIUM
     Dosage: 40MG DAILY
     Route: 065

REACTIONS (7)
  - Hypotension [Recovered/Resolved]
  - Acute myocardial infarction [Unknown]
  - Hyperthyroidism [Recovered/Resolved]
  - Product preparation error [Recovering/Resolving]
  - Renal injury [Unknown]
  - Delirium [Recovered/Resolved]
  - Overdose [Recovering/Resolving]
